FAERS Safety Report 9115617 (Version 1)
Quarter: 2013Q1

REPORT INFORMATION
  Report Type: Spontaneous
  Country: US (occurrence: US)
  Receive Date: 20130225
  Receipt Date: 20130225
  Transmission Date: 20140127
  Serious: No
  Sender: FDA-Public Use
  Company Number: US-BRISTOL-MYERS SQUIBB COMPANY-16422636

PATIENT
  Sex: Female

DRUGS (1)
  1. KENALOG [Suspect]
     Dosage: SECOND INJ ON31MAR2011.
     Dates: start: 20110321

REACTIONS (4)
  - Injection site atrophy [Not Recovered/Not Resolved]
  - Asthenia [Not Recovered/Not Resolved]
  - Fall [Not Recovered/Not Resolved]
  - Arthralgia [Not Recovered/Not Resolved]
